FAERS Safety Report 12768406 (Version 1)
Quarter: 2016Q3

REPORT INFORMATION
  Report Type: Spontaneous
  Country: US (occurrence: US)
  Receive Date: 20160921
  Receipt Date: 20160921
  Transmission Date: 20161109
  Serious: No
  Sender: FDA-Public Use
  Company Number: US-BRAINTREE LABORATORIES-160103-1

PATIENT
  Age: 55 Year
  Sex: Male

DRUGS (1)
  1. SUPREP BOWEL PREP [Suspect]
     Active Substance: MAGNESIUM SULFATE\POTASSIUM SULFATE\SODIUM SULFATE
     Indication: COLONOSCOPY
     Dosage: {1X6OZ.BOTTLE
     Route: 048
     Dates: start: 20160209, end: 20160209

REACTIONS (8)
  - Asthenia [None]
  - Choking [None]
  - Throat tightness [None]
  - Dyspnoea [None]
  - Flatulence [None]
  - Salivary hypersecretion [None]
  - Wheezing [None]
  - Nausea [None]

NARRATIVE: CASE EVENT DATE: 20160209
